FAERS Safety Report 25577360 (Version 2)
Quarter: 2025Q3

REPORT INFORMATION
  Report Type: Spontaneous
  Country: JP (occurrence: JP)
  Receive Date: 20250718
  Receipt Date: 20250723
  Transmission Date: 20251021
  Serious: Yes (Other)
  Sender: PFIZER
  Company Number: JP-PFIZER INC-PV202400135962

PATIENT
  Age: 76 Year
  Sex: Female

DRUGS (4)
  1. TALZENNA [Suspect]
     Active Substance: TALAZOPARIB TOSYLATE
     Indication: Breast cancer female
     Dosage: 0.75 MG, DAILY
     Route: 048
     Dates: start: 20240926, end: 20241019
  2. TALZENNA [Suspect]
     Active Substance: TALAZOPARIB TOSYLATE
     Dosage: 0.75 MG, DAILY
     Route: 048
     Dates: end: 202412
  3. TALZENNA [Suspect]
     Active Substance: TALAZOPARIB TOSYLATE
     Dates: start: 2025, end: 202504
  4. TALZENNA [Suspect]
     Active Substance: TALAZOPARIB TOSYLATE
     Dosage: 0.5 MG, DAILY
     Route: 048
     Dates: start: 202504, end: 202507

REACTIONS (5)
  - Breast cancer female [Unknown]
  - Malignant neoplasm progression [Unknown]
  - Metastasis [Unknown]
  - Renal impairment [Unknown]
  - Anaemia [Recovered/Resolved]

NARRATIVE: CASE EVENT DATE: 20241127
